FAERS Safety Report 9989500 (Version 2)
Quarter: 2014Q1

REPORT INFORMATION
  Report Type: Report from Study
  Country: US (occurrence: US)
  Receive Date: 20140310
  Receipt Date: 20140310
  Transmission Date: 20141002
  Serious: No
  Sender: FDA-Public Use
  Company Number: US-ABBVIE-13P-163-1116071-00

PATIENT
  Age: 75 Year
  Sex: Female

DRUGS (14)
  1. HUMIRA [Suspect]
     Indication: PSORIASIS
     Dosage: LOADING DOSE
     Dates: start: 20130624, end: 20130624
  2. HUMIRA [Suspect]
     Dates: start: 201307
  3. CYMBALTA [Concomitant]
     Indication: DEPRESSION
  4. PRILOSEC [Concomitant]
     Indication: GASTRIC DISORDER
  5. ESTRADIOL [Concomitant]
     Indication: HORMONE REPLACEMENT THERAPY
  6. SIMVASTATIN [Concomitant]
     Indication: BLOOD CHOLESTEROL
  7. BUPROPION [Concomitant]
     Indication: DEPRESSION
  8. VIT B12 [Concomitant]
     Indication: VITAMIN SUPPLEMENTATION
  9. VITAMIN B6 [Concomitant]
     Indication: VITAMIN SUPPLEMENTATION
  10. VIT D [Concomitant]
     Indication: VITAMIN SUPPLEMENTATION
  11. FISH OIL [Concomitant]
     Indication: NUTRITIONAL SUPPLEMENTATION
  12. FOLIC ACID [Concomitant]
     Indication: VITAMIN SUPPLEMENTATION
  13. ASPIRIN [Concomitant]
     Indication: PRODUCT USED FOR UNKNOWN INDICATION
  14. HYDROXYZINE [Concomitant]
     Indication: INSOMNIA
     Dosage: 2 TO 3 TABLETS NIGHTLY

REACTIONS (2)
  - Injection site pain [Not Recovered/Not Resolved]
  - Injection site pain [Not Recovered/Not Resolved]
